FAERS Safety Report 8268663-0 (Version None)
Quarter: 2012Q2

REPORT INFORMATION
  Report Type: 
  Country: None (occurrence: None)
  Receive Date: 20120409
  Receipt Date: 20120330
  Transmission Date: 20120825
  Serious: Yes (Hospitalization)
  Sender: FDA-Public Use
  Company Number: US-BRISTOL-MYERS SQUIBB COMPANY-16491961

PATIENT
  Age: 58 Year
  Sex: Female
  Weight: 87 kg

DRUGS (2)
  1. IXABEPILONE [Suspect]
     Indication: BREAST CANCER METASTATIC
     Dosage: LAST DOSE ON16MAR2012 NO OF COURSE-1
     Route: 042
     Dates: start: 20120316
  2. SORAFENIB [Suspect]
     Indication: BREAST CANCER METASTATIC
     Dosage: LAST DOSE ON 22MAR2012. NO OF COURSE-1
     Route: 048
     Dates: start: 20120316

REACTIONS (1)
  - DERMATITIS ACNEIFORM [None]
